FAERS Safety Report 7192623-4 (Version None)
Quarter: 2010Q4

REPORT INFORMATION
  Report Type: 
  Country: None (occurrence: None)
  Receive Date: 20101221
  Receipt Date: 20101221
  Transmission Date: 20110411
  Serious: Yes (Life-Threatening)
  Sender: FDA-Public Use
  Company Number: None

PATIENT
  Age: 38 Year
  Sex: Female
  Weight: 59.1 kg

DRUGS (1)
  1. DACLIZUMAB [Suspect]
     Indication: PANCREAS ISLET CELL TRANSPLANT
     Dosage: 150 MG ONE TIME ONLY IV DRIP
     Route: 041
     Dates: start: 20081104, end: 20081104

REACTIONS (3)
  - DYSPNOEA [None]
  - EYE PRURITUS [None]
  - EYELID OEDEMA [None]
